FAERS Safety Report 25544670 (Version 1)
Quarter: 2025Q3

REPORT INFORMATION
  Report Type: Spontaneous
  Country: US (occurrence: None)
  Receive Date: 20250711
  Receipt Date: 20250711
  Transmission Date: 20251021
  Serious: Yes (Life-Threatening, Disabling, Other)
  Sender: FDA-CTU
  Company Number: None

PATIENT
  Age: 81 Year
  Sex: Female
  Weight: 42.75 kg

DRUGS (9)
  1. VERQUVO [Suspect]
     Active Substance: VERICIGUAT
     Indication: Hypotension
     Dosage: OTHER QUANTITY : 1 TABLET(S);?FREQUENCY : DAILY;?
     Route: 048
     Dates: start: 20250601, end: 20250704
  2. BUMETANIDE [Concomitant]
     Active Substance: BUMETANIDE
  3. FAMOTIDINE [Concomitant]
     Active Substance: FAMOTIDINE
  4. CARVEDILOL [Concomitant]
     Active Substance: CARVEDILOL
  5. WARFARIN SODIUM [Concomitant]
     Active Substance: WARFARIN SODIUM
  6. Nitrogiycerin [Concomitant]
  7. XANAX [Concomitant]
     Active Substance: ALPRAZOLAM
  8. SYNTHROID [Concomitant]
     Active Substance: LEVOTHYROXINE SODIUM
  9. Tylendol [Concomitant]

REACTIONS (5)
  - Confusional state [None]
  - Disorientation [None]
  - Hypotension [None]
  - Impaired quality of life [None]
  - Cognitive disorder [None]

NARRATIVE: CASE EVENT DATE: 20250604
